FAERS Safety Report 11331475 (Version 1)
Quarter: 2015Q3

REPORT INFORMATION
  Report Type: Spontaneous
  Country: US (occurrence: US)
  Receive Date: 20150803
  Receipt Date: 20150803
  Transmission Date: 20151125
  Serious: No
  Sender: FDA-Public Use
  Company Number: US-ASTRAZENECA-2015SE72113

PATIENT
  Sex: Male

DRUGS (2)
  1. OXYCONTIN [Concomitant]
     Active Substance: OXYCODONE HYDROCHLORIDE
  2. MOVANTIK [Suspect]
     Active Substance: NALOXEGOL OXALATE
     Route: 048
     Dates: start: 20150722

REACTIONS (9)
  - Tremor [Unknown]
  - Diarrhoea [Unknown]
  - Pain [Unknown]
  - Chills [Unknown]
  - Asthenia [Unknown]
  - Muscle spasms [Unknown]
  - Hyperhidrosis [Unknown]
  - Abdominal discomfort [Unknown]
  - Malaise [Unknown]
